FAERS Safety Report 9399404 (Version 1)
Quarter: 2013Q3

REPORT INFORMATION
  Report Type: Spontaneous
  Country: BE (occurrence: BE)
  Receive Date: 20130715
  Receipt Date: 20130715
  Transmission Date: 20140515
  Serious: Yes (Other)
  Sender: FDA-Public Use
  Company Number: BE-GENZYME-FABR-1003430

PATIENT
  Sex: 0
  Weight: 65 kg

DRUGS (1)
  1. FABRAZYME [Suspect]
     Indication: FABRY^S DISEASE
     Dosage: 1.07 MG/KG, UNK
     Route: 042
     Dates: start: 2005

REACTIONS (2)
  - Globotriaosylceramide increased [Unknown]
  - Pain in extremity [Unknown]
